FAERS Safety Report 10064478 (Version 1)
Quarter: 2014Q2

REPORT INFORMATION
  Report Type: Spontaneous
  Country: US (occurrence: None)
  Receive Date: 20140407
  Receipt Date: 20140407
  Transmission Date: 20141212
  Serious: Yes (Hospitalization)
  Sender: FDA-Public Use
  Company Number: None

PATIENT
  Sex: Male
  Weight: 99.5 kg

DRUGS (1)
  1. IBUPROFEN [Suspect]
     Indication: PAIN
     Dosage: 800 MG PRN PO
     Route: 048
     Dates: start: 20140322, end: 20140329

REACTIONS (4)
  - Vision blurred [None]
  - Loss of consciousness [None]
  - Rhabdomyolysis [None]
  - Anaphylactic reaction [None]
